FAERS Safety Report 9396290 (Version 1)
Quarter: 2013Q3

REPORT INFORMATION
  Report Type: Spontaneous
  Country: IT (occurrence: IT)
  Receive Date: 20130711
  Receipt Date: 20130711
  Transmission Date: 20140515
  Serious: Yes (Hospitalization)
  Sender: FDA-Public Use
  Company Number: IT-ACTAVIS-2013-12565

PATIENT
  Age: 64 Year
  Sex: Male

DRUGS (7)
  1. IRINOTECAN HYDROCHLORIDE (UNKNOWN) [Suspect]
     Indication: COLON NEOPLASM
     Dosage: 180 MG/M2, EVERY TRIMESTER
     Route: 042
     Dates: start: 20121220, end: 20130426
  2. ONDANSETRON HYDROCHLORIDE (UNKNOWN) [Suspect]
     Indication: PREMEDICATION
     Dosage: 8 MG, EVERY TRIMESTER
     Route: 042
     Dates: start: 20121220, end: 20130426
  3. AVASTIN /01555201/ [Suspect]
     Indication: COLON NEOPLASM
     Dosage: 400 MG, EVERY TRIMESTER
     Route: 042
     Dates: start: 20130222, end: 20130426
  4. AVASTIN /01555201/ [Suspect]
     Dosage: 35 MG, EVERY TRIMESTER
     Route: 042
     Dates: start: 20130222, end: 20130426
  5. ZANTAC [Concomitant]
     Indication: PREMEDICATION
     Dosage: UNK, UNKNOWN
     Route: 065
     Dates: start: 20121220, end: 20130426
  6. XELODA [Concomitant]
     Indication: COLON NEOPLASM
     Dosage: UNK, UNKNOWN
     Route: 065
     Dates: start: 20121220, end: 20130426
  7. DEXAMETHASONE                      /00016002/ [Concomitant]
     Indication: PREMEDICATION
     Dosage: UNK, UNKNOWN
     Route: 065
     Dates: start: 20121220, end: 20130426

REACTIONS (2)
  - Hypertension [Recovered/Resolved]
  - Subileus [Recovered/Resolved]
